FAERS Safety Report 5726206-7 (Version None)
Quarter: 2008Q2

REPORT INFORMATION
  Report Type: 
  Country: None (occurrence: None)
  Receive Date: 20080502
  Receipt Date: 20080421
  Transmission Date: 20081010
  Serious: Yes (Hospitalization, Disabling)
  Sender: FDA-Public Use
  Company Number: FR-AMGEN-US166988

PATIENT
  Sex: Female
  Weight: 46 kg

DRUGS (4)
  1. ENBREL [Suspect]
     Indication: JUVENILE ARTHRITIS
     Route: 058
     Dates: start: 20030815
  2. CORTANCYL [Suspect]
     Indication: JUVENILE ARTHRITIS
     Route: 048
     Dates: start: 20030823, end: 20060731
  3. NAPROXEN SODIUM [Suspect]
     Indication: JUVENILE ARTHRITIS
     Dates: start: 20010927
  4. SOMATROPIN [Concomitant]
     Indication: BODY HEIGHT BELOW NORMAL
     Route: 058
     Dates: start: 20010927, end: 20060731

REACTIONS (1)
  - OSTEONECROSIS [None]
